FAERS Safety Report 10032806 (Version 2)
Quarter: 2014Q1

REPORT INFORMATION
  Report Type: Report from Study
  Country: DE (occurrence: DE)
  Receive Date: 20140324
  Receipt Date: 20140324
  Transmission Date: 20141002
  Serious: Yes (Death)
  Sender: FDA-Public Use
  Company Number: DE-SA-2014SA028957

PATIENT
  Age: 65 Year
  Sex: Female

DRUGS (11)
  1. DOCETAXEL [Suspect]
     Indication: PRODUCT USED FOR UNKNOWN INDICATION
     Route: 041
     Dates: start: 20140219, end: 20140219
  2. OXALIPLATIN [Suspect]
     Indication: PRODUCT USED FOR UNKNOWN INDICATION
     Route: 041
     Dates: start: 20140219, end: 20140219
  3. FOLINIC ACID [Suspect]
     Indication: PRODUCT USED FOR UNKNOWN INDICATION
     Route: 065
     Dates: start: 20140219, end: 20140219
  4. 5-FU [Suspect]
     Indication: PRODUCT USED FOR UNKNOWN INDICATION
     Route: 065
     Dates: start: 20140219, end: 20140219
  5. FORTECORTIN [Concomitant]
     Route: 048
     Dates: start: 20140218, end: 20140218
  6. FORTECORTIN [Concomitant]
     Route: 042
     Dates: start: 20140219, end: 20140219
  7. FORTECORTIN [Concomitant]
     Route: 048
     Dates: start: 20140219, end: 20140219
  8. FORTECORTIN [Concomitant]
     Route: 048
     Dates: start: 20140220, end: 20140220
  9. FORTECORTIN [Concomitant]
     Route: 048
     Dates: start: 20140221, end: 20140221
  10. KEVATRIL [Concomitant]
     Route: 042
     Dates: start: 20140219, end: 20140219
  11. ANTIEMETICS AND ANTINAUSEANTS [Concomitant]
     Route: 042
     Dates: start: 20140219, end: 20140219

REACTIONS (5)
  - Neutropenic sepsis [Fatal]
  - Leukopenia [Fatal]
  - Pyrexia [Fatal]
  - Thrombocytopenia [Fatal]
  - Disturbance in attention [Fatal]
